FAERS Safety Report 20780464 (Version 2)
Quarter: 2022Q2

REPORT INFORMATION
  Report Type: Spontaneous
  Country: GB (occurrence: GB)
  Receive Date: 20220504
  Receipt Date: 20220624
  Transmission Date: 20220721
  Serious: Yes (Disabling)
  Sender: FDA-Public Use
  Company Number: GB-BIOGEN-2021BI01032256

PATIENT
  Sex: Female

DRUGS (4)
  1. DALFAMPRIDINE [Suspect]
     Active Substance: DALFAMPRIDINE
     Indication: Multiple sclerosis
     Route: 048
     Dates: start: 201303
  2. DALFAMPRIDINE [Suspect]
     Active Substance: DALFAMPRIDINE
     Route: 048
     Dates: start: 2017
  3. DALFAMPRIDINE [Suspect]
     Active Substance: DALFAMPRIDINE
  4. GABAPENTIN [Concomitant]
     Active Substance: GABAPENTIN
     Indication: Product used for unknown indication
     Route: 065

REACTIONS (6)
  - Mobility decreased [Unknown]
  - Inappropriate schedule of product administration [Unknown]
  - Emotional distress [Unknown]
  - Nasopharyngitis [Unknown]
  - Muscle spasms [Unknown]
  - Secondary progressive multiple sclerosis [Unknown]
